FAERS Safety Report 5202677-X (Version None)
Quarter: 2006Q4

REPORT INFORMATION
  Report Type: 
  Country: None (occurrence: None)
  Receive Date: 20061016
  Receipt Date: 20060731
  Transmission Date: 20070319
  Serious: No
  Sender: FDA-Public Use
  Company Number: 2006SP002879

PATIENT
  Sex: Male

DRUGS (1)
  1. LUNESTA [Suspect]
     Dosage: ORAL
     Route: 048

REACTIONS (1)
  - HANGOVER [None]
